FAERS Safety Report 6672474-7 (Version None)
Quarter: 2010Q2

REPORT INFORMATION
  Report Type: 
  Country: None (occurrence: None)
  Receive Date: 20100408
  Receipt Date: 20100401
  Transmission Date: 20101027
  Serious: Yes (Hospitalization, Other)
  Sender: FDA-Public Use
  Company Number: US-ABBOTT-10P-163-0636065-00

PATIENT
  Sex: Female
  Weight: 64.922 kg

DRUGS (5)
  1. HUMIRA [Suspect]
     Indication: PSORIASIS
     Dates: start: 20091101, end: 20091101
  2. HUMIRA [Suspect]
     Dates: start: 20091101, end: 20091101
  3. METHOTREXATE [Suspect]
     Indication: PSORIASIS
     Dates: start: 20090101, end: 20091001
  4. SYNTHROID [Concomitant]
     Indication: HYPOTHYROIDISM
  5. VITAMIN B-12 [Concomitant]
     Indication: PERNICIOUS ANAEMIA

REACTIONS (3)
  - BONE EROSION [None]
  - DEVICE MALFUNCTION [None]
  - JAW DISORDER [None]
